FAERS Safety Report 8808485 (Version 1)
Quarter: 2012Q4

REPORT INFORMATION
  Report Type: Spontaneous
  Country: US (occurrence: None)
  Receive Date: 20120920
  Receipt Date: 20120920
  Transmission Date: 20130627
  Serious: Yes (Hospitalization, Other)
  Sender: FDA-Public Use
  Company Number: None

PATIENT
  Age: 63 Year
  Sex: Female
  Weight: 68.04 kg

DRUGS (3)
  1. TRAMADOL HCL [Suspect]
     Dosage: 1 daily po
     Route: 048
  2. SSD CREAM [Concomitant]
  3. UNSPECIFIED INGREDIENT [Concomitant]

REACTIONS (5)
  - Rash [None]
  - Pruritus [None]
  - Pain [None]
  - Dizziness [None]
  - Dry skin [None]
